FAERS Safety Report 9424834 (Version 4)
Quarter: 2013Q4

REPORT INFORMATION
  Report Type: Spontaneous
  Country: US (occurrence: US)
  Receive Date: 20130729
  Receipt Date: 20131023
  Transmission Date: 20140711
  Serious: No
  Sender: FDA-Public Use
  Company Number: US-PFIZER INC-2013218326

PATIENT
  Age: 75 Year
  Sex: Female
  Weight: 49.89 kg

DRUGS (3)
  1. CELEBREX [Suspect]
     Indication: ARTHRALGIA
     Dosage: 200 MG, 1X/DAY
     Route: 048
     Dates: start: 201307, end: 201308
  2. CELEBREX [Suspect]
     Indication: MUSCLE STRAIN
  3. ADVIL [Suspect]
     Indication: ARTHRALGIA
     Dosage: UNK
     Dates: start: 20130722

REACTIONS (4)
  - Drug ineffective [Unknown]
  - Drug administration error [Unknown]
  - Dry eye [Recovered/Resolved]
  - Eye discharge [Recovered/Resolved]
